FAERS Safety Report 6384546-5 (Version None)
Quarter: 2009Q3

REPORT INFORMATION
  Report Type: 
  Country: None (occurrence: None)
  Receive Date: 20090928
  Receipt Date: 20090915
  Transmission Date: 20100115
  Serious: Yes (Hospitalization)
  Sender: FDA-Public Use
  Company Number: 2009AL006089

PATIENT
  Age: 48 Year
  Sex: Male

DRUGS (5)
  1. DICLOFENAC SODIUM [Suspect]
     Indication: PAIN
     Dosage: 100 MG;QD
     Dates: start: 20070220
  2. LORMETAZEPAM [Concomitant]
  3. FLUTICASONE PROPIONATE [Concomitant]
  4. FLIXOTIDE [Concomitant]
  5. VENTOLIN [Concomitant]

REACTIONS (2)
  - TENDON RUPTURE [None]
  - TENDONITIS [None]
